FAERS Safety Report 9424525 (Version 2)
Quarter: 2013Q3

REPORT INFORMATION
  Report Type: Spontaneous
  Country: US (occurrence: None)
  Receive Date: 20130725
  Receipt Date: 20130912
  Transmission Date: 20140515
  Serious: Yes (Other)
  Sender: FDA-Public Use
  Company Number: 2013-311

PATIENT
  Age: 50 Year
  Sex: Female

DRUGS (2)
  1. PRIALT [Suspect]
     Indication: PAIN
     Dosage: MCG
     Route: 037
  2. MORPHINE SULFATE [Suspect]
     Indication: PAIN
     Route: 037
     Dates: start: 2003, end: 20130703

REACTIONS (6)
  - Blood glucose increased [None]
  - Hallucination, olfactory [None]
  - Musculoskeletal discomfort [None]
  - Dysgeusia [None]
  - Decreased appetite [None]
  - Drug withdrawal syndrome [None]
